FAERS Safety Report 18839290 (Version 1)
Quarter: 2021Q1

REPORT INFORMATION
  Report Type: Report from Study
  Country: US (occurrence: US)
  Receive Date: 20210203
  Receipt Date: 20210203
  Transmission Date: 20210419
  Serious: No
  Sender: FDA-Public Use
  Company Number: US-EXELIXIS-CABO-20031793

PATIENT
  Sex: Male

DRUGS (2)
  1. CABOMETYX [Suspect]
     Active Substance: CABOZANTINIB S-MALATE
     Indication: RENAL CELL CARCINOMA
     Dosage: 60 MG, QD
     Dates: start: 20200713, end: 202008
  2. CABOMETYX [Suspect]
     Active Substance: CABOZANTINIB S-MALATE
     Dosage: 60 MG, QD
     Dates: start: 20200814

REACTIONS (12)
  - Hair texture abnormal [Unknown]
  - Alopecia [Unknown]
  - Blood pressure increased [Unknown]
  - Decreased appetite [Unknown]
  - Cough [Unknown]
  - Hair colour changes [Unknown]
  - Adverse drug reaction [Unknown]
  - Dyspnoea [Unknown]
  - Respiratory tract irritation [Unknown]
  - Dysphonia [Unknown]
  - Taste disorder [Unknown]
  - Pain in extremity [Unknown]
